FAERS Safety Report 20487568 (Version 1)
Quarter: 2022Q1

REPORT INFORMATION
  Report Type: Spontaneous
  Country: FR (occurrence: FR)
  Receive Date: 20220218
  Receipt Date: 20220218
  Transmission Date: 20220423
  Serious: Yes (Death)
  Sender: FDA-Public Use
  Company Number: None

PATIENT
  Age: 35 Year
  Sex: Male
  Weight: 72 kg

DRUGS (4)
  1. FENTANYL [Suspect]
     Active Substance: FENTANYL
     Indication: Pain
     Dosage: START DATE /DEC/2021?END DATE 21/DEC/2021
     Route: 050
  2. ESCITALOPRAM OXALATE [Suspect]
     Active Substance: ESCITALOPRAM OXALATE
     Indication: Pain
     Dosage: START DATE /DEC/2021?END DATE: 21/DEC/2021
     Route: 048
  3. OXAZEPAM [Suspect]
     Active Substance: OXAZEPAM
     Indication: Product administration error
     Dosage: START DATE 20/DEC/2021?END DATE 20/DEC/2021
     Route: 048
  4. AMITRIPTYLINE HYDROCHLORIDE [Suspect]
     Active Substance: AMITRIPTYLINE HYDROCHLORIDE
     Indication: Pain
     Dosage: START DATE /DEC/2021?END DATE 21/DEC/2021
     Route: 048

REACTIONS (1)
  - Hypercapnic coma [Fatal]

NARRATIVE: CASE EVENT DATE: 20211220
